FAERS Safety Report 6689145-3 (Version None)
Quarter: 2010Q2

REPORT INFORMATION
  Report Type: 
  Country: None (occurrence: None)
  Receive Date: 20100420
  Receipt Date: 20100409
  Transmission Date: 20101027
  Serious: Yes (Hospitalization, Other)
  Sender: FDA-Public Use
  Company Number: US-JNJCH-2009031665

PATIENT
  Age: 43 Year
  Sex: Female

DRUGS (1)
  1. ASPIRIN [Suspect]
     Indication: SUICIDE ATTEMPT
     Dosage: TEXT:700 TABLETS DISSOLVED IN WATER
     Route: 054

REACTIONS (4)
  - CARDIAC ARREST [None]
  - HYPOXIC ENCEPHALOPATHY [None]
  - INCORRECT ROUTE OF DRUG ADMINISTRATION [None]
  - THERAPEUTIC AGENT TOXICITY [None]
